FAERS Safety Report 7081739-9 (Version None)
Quarter: 2010Q4

REPORT INFORMATION
  Report Type: 
  Country: None (occurrence: None)
  Receive Date: 20101103
  Receipt Date: 20101021
  Transmission Date: 20110411
  Serious: Yes (Hospitalization, Other)
  Sender: FDA-Public Use
  Company Number: US-ELI_LILLY_AND_COMPANY-US201010005174

PATIENT
  Sex: Male

DRUGS (10)
  1. GEMCITABINE HCL [Suspect]
     Indication: PANCREATIC CARCINOMA METASTATIC
     Dosage: 1000 MG/M2, UNKNOWN
     Route: 065
     Dates: start: 20101012
  2. PACLITAXEL [Suspect]
     Indication: PANCREATIC CARCINOMA METASTATIC
     Dosage: 125 MG/M2, WEEKLY (1/W)
     Route: 065
     Dates: start: 20101012
  3. PROCHLORPERAZINE [Concomitant]
     Indication: NAUSEA
     Dosage: 10 MG, UNK
     Route: 048
     Dates: start: 20101012
  4. MORPHINE SULFATE [Concomitant]
     Indication: PAIN
     Dosage: 60 MG, UNK
     Route: 048
     Dates: start: 20101001
  5. OXYCODONE HCL [Concomitant]
     Indication: PAIN
     Dosage: 2 D/F, 4/D
     Route: 048
     Dates: start: 20101001
  6. ESOMEPRAZOLE [Concomitant]
     Indication: GASTROOESOPHAGEAL REFLUX DISEASE
     Dosage: 20 MG, UNK
     Route: 048
  7. ONDANSETRON [Concomitant]
     Indication: NAUSEA
     Dosage: 8 MG, UNK
     Route: 048
     Dates: start: 20101012
  8. GLIMEPIRIDE [Concomitant]
     Indication: DIABETES MELLITUS
     Route: 048
  9. AMLODIPINE BESYLATE AND BENAZEPRIL HCL [Concomitant]
     Indication: HYPERTENSION
  10. METFORMIN AND SITAGLIPTIN [Concomitant]

REACTIONS (2)
  - DEHYDRATION [None]
  - RENAL FAILURE ACUTE [None]
